FAERS Safety Report 8131663-5 (Version None)
Quarter: 2012Q1

REPORT INFORMATION
  Report Type: 
  Country: None (occurrence: None)
  Receive Date: 20120208
  Receipt Date: 20120131
  Transmission Date: 20120608
  Serious: Yes (Other)
  Sender: FDA-Public Use
  Company Number: 2012SP005923

PATIENT
  Sex: Male

DRUGS (2)
  1. PEG-INTRON [Suspect]
     Indication: HEPATITIS
     Dates: start: 20111104, end: 20111223
  2. RIBAVIRIN [Suspect]
     Indication: HEPATITIS
     Dates: start: 20111104, end: 20111223

REACTIONS (4)
  - EMPHYSEMA [None]
  - CHRONIC OBSTRUCTIVE PULMONARY DISEASE [None]
  - DYSPNOEA [None]
  - CONDITION AGGRAVATED [None]
